FAERS Safety Report 10944586 (Version 1)
Quarter: 2015Q1

REPORT INFORMATION
  Report Type: Spontaneous
  Country: US (occurrence: None)
  Receive Date: 20150320
  Receipt Date: 20150320
  Transmission Date: 20150721
  Serious: No
  Sender: FDA-Public Use
  Company Number: None

PATIENT
  Age: 53 Year
  Sex: Male
  Weight: 95.5 kg

DRUGS (1)
  1. RIVAROXABAN [Suspect]
     Active Substance: RIVAROXABAN
     Indication: DEEP VEIN THROMBOSIS
     Route: 048
     Dates: start: 20140710, end: 20140911

REACTIONS (6)
  - Palpitations [None]
  - Pruritus [None]
  - Abdominal pain [None]
  - Inappropriate schedule of drug administration [None]
  - Anxiety [None]
  - Urticaria [None]

NARRATIVE: CASE EVENT DATE: 20140911
